FAERS Safety Report 6447440-7 (Version None)
Quarter: 2009Q4

REPORT INFORMATION
  Report Type: 
  Country: None (occurrence: None)
  Receive Date: 20091119
  Receipt Date: 20091111
  Transmission Date: 20100525
  Serious: Yes (Hospitalization)
  Sender: FDA-Public Use
  Company Number: JP-BAXTER-2009BH017574

PATIENT
  Age: 17 Year
  Sex: Female

DRUGS (6)
  1. ENDOXAN BAXTER [Suspect]
     Indication: BONE SARCOMA
     Route: 065
  2. METHOTREXATE GENERIC [Suspect]
     Indication: BONE SARCOMA
     Route: 065
  3. BLEOMYCIN GENERIC [Suspect]
     Indication: BONE SARCOMA
     Route: 065
  4. DACTINOMYCIN [Suspect]
     Indication: BONE SARCOMA
     Route: 065
  5. CISPLATIN [Suspect]
     Indication: BONE SARCOMA
     Route: 065
  6. DOXORUBICIN HYDROCHLORIDE [Suspect]
     Indication: BONE SARCOMA
     Route: 065

REACTIONS (1)
  - LUNG ADENOCARCINOMA [None]
